FAERS Safety Report 8983992 (Version 1)
Quarter: 2012Q4

REPORT INFORMATION
  Report Type: Spontaneous
  Country: US (occurrence: None)
  Receive Date: 20121218
  Receipt Date: 20121218
  Transmission Date: 20130627
  Serious: Yes (Other)
  Sender: FDA-Public Use
  Company Number: None

PATIENT
  Age: 29 Year
  Sex: Female
  Weight: 67.13 kg

DRUGS (2)
  1. METHYLPHENIDATE [Suspect]
     Indication: ADHD
     Dosage: 3x iv
     Route: 042
     Dates: start: 19960808, end: 20121210
  2. PROVIGIL [Suspect]
     Indication: SLEEP DISORDER
     Dosage: 2x  iv
     Route: 042
     Dates: start: 20060108, end: 20121210

REACTIONS (3)
  - Dysarthria [None]
  - Clumsiness [None]
  - Somnolence [None]
